FAERS Safety Report 7388710-8 (Version None)
Quarter: 2011Q2

REPORT INFORMATION
  Report Type: 
  Country: None (occurrence: None)
  Receive Date: 20110401
  Receipt Date: 20110325
  Transmission Date: 20111010
  Serious: Yes (Death, Other)
  Sender: FDA-Public Use
  Company Number: CN-BRISTOL-MYERS SQUIBB COMPANY-15628548

PATIENT
  Age: 50 Year
  Sex: Male

DRUGS (5)
  1. CYCLOPHOSPHAMIDE [Suspect]
     Indication: B-CELL LYMPHOMA
     Dosage: DAY 1
     Route: 042
     Dates: start: 20060420, end: 20060622
  2. PREDNISONE [Suspect]
     Indication: B-CELL LYMPHOMA
     Dosage: ON DAYS 1 TO  5
     Route: 042
     Dates: start: 20060420, end: 20060622
  3. RITUXIMAB [Suspect]
     Indication: B-CELL LYMPHOMA
     Dosage: DAY 1
     Route: 042
     Dates: start: 20060420, end: 20060622
  4. VINCRISTINE [Suspect]
     Indication: B-CELL LYMPHOMA
     Dosage: ON DAY 1
     Route: 042
     Dates: start: 20060420, end: 20060622
  5. DOXORUBICIN [Suspect]
     Indication: B-CELL LYMPHOMA
     Dosage: DAY 1
     Route: 042
     Dates: start: 20060420, end: 20060622

REACTIONS (4)
  - HEPATIC FAILURE [None]
  - HEPATORENAL SYNDROME [None]
  - HEPATITIS FULMINANT [None]
  - HEPATITIS B [None]
